FAERS Safety Report 7559911-0 (Version None)
Quarter: 2011Q2

REPORT INFORMATION
  Report Type: 
  Country: None (occurrence: None)
  Receive Date: 20110621
  Receipt Date: 20110615
  Transmission Date: 20111010
  Serious: Yes (Other)
  Sender: FDA-Public Use
  Company Number: US-SANOFI-AVENTIS-2011SA038163

PATIENT
  Age: 78 Year
  Sex: Male

DRUGS (6)
  1. REPAGLINIDE [Concomitant]
  2. CHOLESTEROL [Concomitant]
  3. LANTUS [Suspect]
     Indication: TYPE 2 DIABETES MELLITUS
     Dosage: DOSE:58 UNIT(S)
     Route: 058
     Dates: start: 20101001
  4. JANUVIA [Concomitant]
  5. SOLOSTAR [Suspect]
     Indication: TYPE 2 DIABETES MELLITUS
     Dates: start: 20101001
  6. GLUCOPHAGE [Concomitant]

REACTIONS (3)
  - PROSTATE CANCER [None]
  - CONDITION AGGRAVATED [None]
  - BLOOD GLUCOSE INCREASED [None]
